FAERS Safety Report 5754593-2 (Version None)
Quarter: 2008Q2

REPORT INFORMATION
  Report Type: 
  Country: None (occurrence: None)
  Receive Date: 20080530
  Receipt Date: 20080201
  Transmission Date: 20081010
  Serious: No
  Sender: FDA-Public Use
  Company Number: US-BAYER-200810886NA

PATIENT
  Age: 43 Year
  Sex: Female

DRUGS (4)
  1. MAGNEVIST [Suspect]
     Indication: NUCLEAR MAGNETIC RESONANCE IMAGING
     Dosage: TOTAL DAILY DOSE: 20 ML  UNIT DOSE: 20 ML
     Route: 042
     Dates: start: 20080106, end: 20080106
  2. TYLENOL FOR ARTHRITIS [Concomitant]
     Indication: ARTHRITIS
  3. PRILOSEC [Concomitant]
  4. FLORISINE [Concomitant]

REACTIONS (1)
  - RASH GENERALISED [None]
